FAERS Safety Report 8249367-7 (Version None)
Quarter: 2012Q2

REPORT INFORMATION
  Report Type: 
  Country: None (occurrence: None)
  Receive Date: 20120402
  Receipt Date: 20120323
  Transmission Date: 20120825
  Serious: Yes (Other)
  Sender: FDA-Public Use
  Company Number: JP-JNJFOC-20120312324

PATIENT
  Sex: Male
  Weight: 48 kg

DRUGS (22)
  1. FENTANYL CITRATE [Concomitant]
     Indication: CANCER PAIN
     Dosage: 1 AMPULE
     Route: 042
     Dates: start: 20111109, end: 20111109
  2. FENTANYL CITRATE [Concomitant]
     Route: 042
     Dates: start: 20111111, end: 20111112
  3. FOLIC ACID [Concomitant]
     Indication: PROPHYLAXIS
     Route: 048
  4. MAGNESIUM OXIDE [Concomitant]
     Indication: PROPHYLAXIS
     Route: 048
     Dates: end: 20111115
  5. LAXOBERON [Concomitant]
     Indication: PROPHYLAXIS
     Dosage: 15 DROPS
     Route: 065
  6. MAGMITT [Concomitant]
     Route: 048
     Dates: start: 20111116, end: 20111128
  7. BETAMETHASONE [Concomitant]
     Route: 048
     Dates: start: 20111230, end: 20120127
  8. FENTANYL [Suspect]
     Indication: CANCER PAIN
     Route: 062
     Dates: start: 20111109
  9. FENTANYL CITRATE [Concomitant]
     Route: 042
     Dates: start: 20111120, end: 20111120
  10. FENTANYL CITRATE [Concomitant]
     Route: 042
     Dates: start: 20111118, end: 20111118
  11. ZOLPIDEM [Concomitant]
     Indication: INSOMNIA
     Route: 048
  12. SEROQUEL [Concomitant]
     Indication: INSOMNIA
     Route: 048
     Dates: start: 20111116
  13. MAGMITT [Concomitant]
     Indication: PROPHYLAXIS
     Route: 048
     Dates: start: 20111129
  14. CHLORPHENIRAMINE MALEATE [Concomitant]
     Indication: PROPHYLAXIS
     Route: 048
  15. MUCOSTA [Concomitant]
     Indication: PROPHYLAXIS
     Route: 048
  16. MOTILIUM [Concomitant]
     Indication: NAUSEA
     Route: 048
  17. BETAMETHASONE [Concomitant]
     Indication: CACHEXIA
     Route: 048
     Dates: start: 20111213, end: 20111230
  18. FENTANYL CITRATE [Concomitant]
     Route: 042
     Dates: start: 20111116, end: 20111116
  19. LOXONIN [Concomitant]
     Indication: CANCER PAIN
     Route: 048
  20. SENNOSIDE [Concomitant]
     Indication: PROPHYLAXIS
     Route: 048
  21. MOTILIUM [Concomitant]
     Indication: VOMITING
     Route: 048
  22. BETAMETHASONE [Concomitant]
     Route: 048
     Dates: start: 20120127

REACTIONS (2)
  - LUNG NEOPLASM MALIGNANT [None]
  - CACHEXIA [None]
